FAERS Safety Report 20729638 (Version 9)
Quarter: 2023Q1

REPORT INFORMATION
  Report Type: Report from Study
  Country: JP (occurrence: JP)
  Receive Date: 20220420
  Receipt Date: 20230221
  Transmission Date: 20230417
  Serious: Yes (Hospitalization)
  Sender: FDA-Public Use
  Company Number: JP-NOVARTISPH-NVSC2022JP089701

PATIENT
  Age: 61 Year
  Sex: Male
  Weight: 95.2 kg

DRUGS (12)
  1. LUTETIUM LU-177 VIPIVOTIDE TETRAXETAN [Suspect]
     Active Substance: LUTETIUM LU-177 VIPIVOTIDE TETRAXETAN
     Indication: Hormone-refractory prostate cancer
     Dosage: 7488 MBQ
     Route: 042
     Dates: start: 20220228
  2. LUTETIUM LU-177 VIPIVOTIDE TETRAXETAN [Suspect]
     Active Substance: LUTETIUM LU-177 VIPIVOTIDE TETRAXETAN
     Dosage: 7572 MBQ
     Route: 042
     Dates: start: 20220412
  3. GALLIUM GA-68 GOZETOTIDE [Suspect]
     Active Substance: GALLIUM GA-68 GOZETOTIDE
     Indication: Hormone-refractory prostate cancer
     Dosage: 179.7 MBQ, ONCE/SINGLE
     Route: 042
     Dates: start: 20220202
  4. CALONAL [Concomitant]
     Active Substance: ACETAMINOPHEN
     Indication: Back pain
     Dosage: UNK
     Route: 065
     Dates: start: 20180727, end: 20220415
  5. CALONAL [Concomitant]
     Active Substance: ACETAMINOPHEN
     Indication: Arthralgia
     Dosage: 3000 MG
     Route: 042
     Dates: start: 20220202, end: 20220415
  6. CALONAL [Concomitant]
     Active Substance: ACETAMINOPHEN
     Indication: Prostate cancer
  7. MAGNESIUM OXIDE [Concomitant]
     Active Substance: MAGNESIUM OXIDE
     Indication: Constipation
     Dosage: UNK
     Route: 065
     Dates: start: 20220411, end: 20220419
  8. DECADRON [Concomitant]
     Active Substance: DEXAMETHASONE
     Indication: Prophylaxis of nausea and vomiting
     Dosage: 0.5 MG
     Route: 042
     Dates: start: 20220131, end: 20220215
  9. DECADRON [Concomitant]
     Active Substance: DEXAMETHASONE
     Indication: Prostate cancer
     Dosage: UNK
     Route: 048
     Dates: start: 20220412, end: 20220414
  10. ALOXI [Concomitant]
     Active Substance: PALONOSETRON HYDROCHLORIDE
     Indication: Prophylaxis of nausea and vomiting
     Dosage: UNK
     Route: 042
     Dates: start: 20220412, end: 20220412
  11. OXYCONTIN [Concomitant]
     Active Substance: OXYCODONE HYDROCHLORIDE
     Indication: Prostate cancer
     Dosage: 20 MG
     Route: 042
     Dates: start: 20220302, end: 20220628
  12. OXYCODONE [Concomitant]
     Active Substance: OXYCODONE
     Indication: Prostate cancer
     Dosage: 20 MG
     Route: 042
     Dates: start: 20220202, end: 20220301

REACTIONS (1)
  - Abdominal pain [Recovering/Resolving]

NARRATIVE: CASE EVENT DATE: 20220412
